FAERS Safety Report 5955873-8 (Version None)
Quarter: 2008Q4

REPORT INFORMATION
  Report Type: 
  Country: None (occurrence: None)
  Receive Date: 20081112
  Receipt Date: 20081031
  Transmission Date: 20090506
  Serious: Yes (Hospitalization)
  Sender: FDA-Public Use
  Company Number: CLOF-10796

PATIENT
  Age: 66 Year
  Sex: Female
  Weight: 90.5 kg

DRUGS (42)
  1. CLOFARABINE (CLOFARABINE) 30MG/M2 [Suspect]
     Indication: MYELOID LEUKAEMIA
     Dosage: 30 MG/M2,QDX5, INTRAVENOUS : 20 MG/M2, QDX5, INTRAVENOUS
     Route: 042
     Dates: start: 20071009, end: 20071013
  2. CLOFARABINE (CLOFARABINE) 30MG/M2 [Suspect]
     Indication: MYELOID LEUKAEMIA
     Dosage: 30 MG/M2,QDX5, INTRAVENOUS : 20 MG/M2, QDX5, INTRAVENOUS
     Route: 042
     Dates: start: 20071126, end: 20071130
  3. ESTRADIOL [Concomitant]
  4. SYNTHROID [Concomitant]
  5. LIPITOR [Concomitant]
  6. METOPROLOL TARTRATE [Concomitant]
  7. AMIKACIN [Concomitant]
  8. PROTONIX [Concomitant]
  9. VALTREX [Concomitant]
  10. PHENAZOPYRIDINE (PHENAZOPYRIDINE) [Concomitant]
  11. ONDANSETRON HCL [Concomitant]
  12. ONDANSETRON HCL [Concomitant]
  13. ALLOPURINOL [Concomitant]
  14. ACETAMINOPHEN [Concomitant]
  15. DIPHENHYDRAMINE HCL [Concomitant]
  16. ANUSOL (ZINC OXIDE, BORIC ACID, BISMUTH HYDROXIDE, BISMUTH SUBGALLATE, [Concomitant]
  17. TRANXENE [Concomitant]
  18. DOMEBORO (CALCIUM ACETATE, ALUMINIUM SULFATE) [Concomitant]
  19. PROPOXYPHENE (DEXTROPROPOXYPHENE) [Concomitant]
  20. MAGNESIUM SULFATE [Concomitant]
  21. HYDROCORTISONE [Concomitant]
  22. MEROPENEM (MEROPENEM) [Concomitant]
  23. LISINOPRIL [Concomitant]
  24. ATARAX [Concomitant]
  25. LORAZEPAM [Concomitant]
  26. GLIMEPIRIDE [Concomitant]
  27. ESOMEPRAZOLE MAGNESIUM [Concomitant]
  28. PROMETHAZINE [Concomitant]
  29. POTASSIUM CHLORIDE [Concomitant]
  30. POTASSIUM CHLORIDE [Concomitant]
  31. NOVOLIN (INSULIN) [Concomitant]
  32. CANCIDAS (CASPOFUNGIN) [Concomitant]
  33. DAPTOMYCIN (DAPTOMYCIN) [Concomitant]
  34. DIPHENOXYLATE HCL W/ ATROPINE SULFATE [Concomitant]
  35. SALINE NASAL SPRAY [Concomitant]
  36. VANCOMYCIN [Concomitant]
  37. NDX [Concomitant]
  38. FLUCONAZOLE [Concomitant]
  39. LOMOTIL [Concomitant]
  40. ZOFRAN [Concomitant]
  41. OLMESARTAN MEDOXOMIL [Concomitant]
  42. FUROSEMIDE [Concomitant]

REACTIONS (21)
  - ANXIETY [None]
  - BLOOD PRESSURE DIASTOLIC DECREASED [None]
  - CARDIOMEGALY [None]
  - DEHYDRATION [None]
  - DIARRHOEA [None]
  - DYSPNOEA [None]
  - GASTROINTESTINAL HAEMORRHAGE [None]
  - KLEBSIELLA INFECTION [None]
  - NAUSEA [None]
  - NEPHROPATHY TOXIC [None]
  - OEDEMA [None]
  - PLEURAL EFFUSION [None]
  - PNEUMONIA [None]
  - PORTAL HYPERTENSIVE GASTROPATHY [None]
  - RECTAL HAEMORRHAGE [None]
  - RENAL FAILURE ACUTE [None]
  - RENAL TUBULAR NECROSIS [None]
  - RESPIRATORY RATE INCREASED [None]
  - SEPSIS [None]
  - URINARY TRACT INFECTION [None]
  - VOMITING [None]
